FAERS Safety Report 11152424 (Version 1)
Quarter: 2015Q2

REPORT INFORMATION
  Report Type: Spontaneous
  Country: US (occurrence: US)
  Receive Date: 20150601
  Receipt Date: 20150601
  Transmission Date: 20150821
  Serious: No
  Sender: FDA-Public Use
  Company Number: US-GLAXOSMITHKLINE-US2015GSK049234

PATIENT
  Age: 53 Year
  Sex: Male
  Weight: 100 kg

DRUGS (2)
  1. IMITREX [Suspect]
     Active Substance: SUMATRIPTAN\SUMATRIPTAN SUCCINATE
     Indication: MIGRAINE
     Dosage: UNK, U
     Route: 065
  2. RELPAX [Concomitant]
     Active Substance: ELETRIPTAN HYDROBROMIDE

REACTIONS (1)
  - Drug ineffective [Unknown]
